FAERS Safety Report 12173370 (Version 2)
Quarter: 2016Q4

REPORT INFORMATION
  Report Type: Spontaneous
  Country: US (occurrence: US)
  Receive Date: 20160311
  Receipt Date: 20161220
  Transmission Date: 20170207
  Serious: No
  Sender: FDA-Public Use
  Company Number: US-BIOGEN-2016BI00197246

PATIENT
  Age: 49 Year
  Sex: Female

DRUGS (3)
  1. TECFIDERA [Suspect]
     Active Substance: DIMETHYL FUMARATE
     Route: 065
     Dates: start: 20141024
  2. TECFIDERA [Suspect]
     Active Substance: DIMETHYL FUMARATE
     Indication: MULTIPLE SCLEROSIS
     Route: 065
     Dates: start: 20151110
  3. TECFIDERA [Suspect]
     Active Substance: DIMETHYL FUMARATE
     Route: 065
     Dates: start: 20140325, end: 20150905

REACTIONS (11)
  - Paraesthesia oral [Not Recovered/Not Resolved]
  - Nasopharyngitis [Unknown]
  - Respiration abnormal [Unknown]
  - Ill-defined disorder [Unknown]
  - Adjustment disorder with depressed mood [Unknown]
  - Fatigue [Unknown]
  - Memory impairment [Not Recovered/Not Resolved]
  - Emotional disorder [Unknown]
  - Pain [Unknown]
  - Feeling drunk [Unknown]
  - Fear [Unknown]

NARRATIVE: CASE EVENT DATE: 201610
